FAERS Safety Report 9735030 (Version 1)
Quarter: 2013Q4

REPORT INFORMATION
  Report Type: Spontaneous
  Country: FR (occurrence: FR)
  Receive Date: 20131206
  Receipt Date: 20131206
  Transmission Date: 20140711
  Serious: Yes (Hospitalization)
  Sender: FDA-Public Use
  Company Number: FR-SA-2013SA124945

PATIENT
  Age: 84 Year
  Sex: Male

DRUGS (9)
  1. BISOPROLOL HEMIFUMARATE [Suspect]
     Indication: CARDIAC FAILURE
     Route: 048
  2. RAMIPRIL [Suspect]
     Indication: CARDIAC FAILURE
     Route: 048
  3. FUROSEMIDE [Suspect]
     Indication: CARDIAC FAILURE
     Route: 048
  4. NAFTIDROFURYL OXALATE [Suspect]
     Indication: PRODUCT USED FOR UNKNOWN INDICATION
     Route: 048
  5. STILNOX [Suspect]
     Indication: INSOMNIA
     Route: 048
  6. TEMESTA [Suspect]
     Indication: ANXIETY
     Route: 048
  7. PRAVASTATIN [Concomitant]
  8. COUMADIN [Concomitant]
  9. HIRUCREME [Concomitant]

REACTIONS (1)
  - Fall [Unknown]
